FAERS Safety Report 6040008-6 (Version None)
Quarter: 2009Q1

REPORT INFORMATION
  Report Type: 
  Country: None (occurrence: None)
  Receive Date: 20090116
  Receipt Date: 20071114
  Transmission Date: 20090719
  Serious: No
  Sender: FDA-Public Use
  Company Number: US-BRISTOL-MYERS SQUIBB COMPANY-13983069

PATIENT
  Age: 68 Year
  Sex: Female

DRUGS (9)
  1. ABILIFY [Suspect]
     Indication: BIPOLAR I DISORDER
     Route: 048
  2. ABILIFY [Suspect]
     Indication: BORDERLINE PERSONALITY DISORDER
     Route: 048
  3. LAMICTAL [Concomitant]
  4. TEGRETOL [Concomitant]
  5. COGENTIN [Concomitant]
  6. LISINOPRIL [Concomitant]
  7. PRILOSEC [Concomitant]
  8. COLACE [Concomitant]
  9. METFORMIN [Concomitant]

REACTIONS (1)
  - PARANOIA [None]
